FAERS Safety Report 8308112-7 (Version None)
Quarter: 2012Q2

REPORT INFORMATION
  Report Type: 
  Country: None (occurrence: None)
  Receive Date: 20120424
  Receipt Date: 20120418
  Transmission Date: 20120825
  Serious: Yes (Hospitalization)
  Sender: FDA-Public Use
  Company Number: CN-GILEAD-2012-0053981

PATIENT
  Sex: Male

DRUGS (1)
  1. HEPSERA [Suspect]
     Indication: HEPATITIS B
     Dosage: 10MG PER DAY
     Route: 048
     Dates: start: 20120408

REACTIONS (4)
  - ASPARTATE AMINOTRANSFERASE INCREASED [None]
  - ALANINE AMINOTRANSFERASE INCREASED [None]
  - PRODUCT COUNTERFEIT [None]
  - PRODUCT QUALITY ISSUE [None]
